FAERS Safety Report 14587848 (Version 2)
Quarter: 2018Q1

REPORT INFORMATION
  Report Type: Spontaneous
  Country: GB (occurrence: GB)
  Receive Date: 20180301
  Receipt Date: 20180312
  Transmission Date: 20180509
  Serious: Yes (Death, Other)
  Sender: FDA-Public Use
  Company Number: GB-SA-2018SA037234

PATIENT
  Age: 95 Year
  Sex: Female

DRUGS (3)
  1. HEPARIN [Concomitant]
     Active Substance: HEPARIN SODIUM
  2. ENOXAPARIN SODIUM. [Suspect]
     Active Substance: ENOXAPARIN SODIUM
     Route: 065
  3. ASPIRIN. [Interacting]
     Active Substance: ASPIRIN
     Route: 065

REACTIONS (4)
  - Duodenal ulcer haemorrhage [Fatal]
  - Drug administration error [Fatal]
  - Chronic kidney disease [Fatal]
  - Labelled drug-drug interaction medication error [Fatal]
